FAERS Safety Report 6214006-3 (Version None)
Quarter: 2009Q2

REPORT INFORMATION
  Report Type: 
  Country: None (occurrence: None)
  Receive Date: 20090604
  Receipt Date: 20090528
  Transmission Date: 20091009
  Serious: Yes (Hospitalization)
  Sender: FDA-Public Use
  Company Number: US-AMGEN-US349504

PATIENT
  Age: 58 Year
  Sex: Male
  Weight: 75.2 kg

DRUGS (4)
  1. PROCRIT [Suspect]
     Indication: HEPATITIS C
     Route: 058
     Dates: start: 20090107
  2. PEG-INTRON [Suspect]
     Route: 058
     Dates: start: 20081110
  3. RIBAVIRIN [Suspect]
     Route: 048
     Dates: start: 20081110
  4. UNSPECIFIED MEDICATION [Suspect]
     Route: 048
     Dates: start: 20081110

REACTIONS (1)
  - CELLULITIS [None]
